FAERS Safety Report 11688063 (Version 2)
Quarter: 2015Q4

REPORT INFORMATION
  Report Type: Spontaneous
  Country: US (occurrence: US)
  Receive Date: 20151030
  Receipt Date: 20151204
  Transmission Date: 20160304
  Serious: No
  Sender: FDA-Public Use
  Company Number: US-ASTRAZENECA-2015SF01493

PATIENT
  Sex: Male
  Weight: 76.2 kg

DRUGS (4)
  1. SYMBICORT [Suspect]
     Active Substance: BUDESONIDE\FORMOTEROL FUMARATE DIHYDRATE
     Indication: ASTHMA
     Dosage: 160/4.5 , TWO PUFFS TWO TIMES A DAY
     Route: 055
     Dates: start: 20151005
  2. SYMBICORT [Suspect]
     Active Substance: BUDESONIDE\FORMOTEROL FUMARATE DIHYDRATE
     Indication: BRONCHITIS
     Dosage: 160/4.5 , TWO PUFFS TWO TIMES A DAY
     Route: 055
     Dates: start: 20151005
  3. SYMBICORT [Suspect]
     Active Substance: BUDESONIDE\FORMOTEROL FUMARATE DIHYDRATE
     Indication: CHRONIC OBSTRUCTIVE PULMONARY DISEASE
     Dosage: 160/4.5 , TWO PUFFS TWO TIMES A DAY
     Route: 055
     Dates: start: 20151005
  4. OXYGEN. [Concomitant]
     Active Substance: OXYGEN
     Dosage: CONTINUOUSLY 24/7

REACTIONS (3)
  - Device malfunction [Not Recovered/Not Resolved]
  - Muscle spasms [Not Recovered/Not Resolved]
  - Drug dose omission [Not Recovered/Not Resolved]

NARRATIVE: CASE EVENT DATE: 20151016
